FAERS Safety Report 5950178-3 (Version None)
Quarter: 2008Q4

REPORT INFORMATION
  Report Type: 
  Country: None (occurrence: None)
  Receive Date: 20081112
  Receipt Date: 20081107
  Transmission Date: 20090506
  Serious: No
  Sender: FDA-Public Use
  Company Number: CH-EISAI MEDICAL RESEARCH-E2020-03648-SPO-CH

PATIENT
  Age: 71 Year
  Sex: Male

DRUGS (11)
  1. ARICEPT [Suspect]
     Indication: DEMENTIA ALZHEIMER'S TYPE
     Route: 048
     Dates: start: 20080801, end: 20080806
  2. NEURONTIN [Suspect]
     Indication: RESTLESSNESS
     Route: 048
     Dates: start: 20080720, end: 20080806
  3. NEURONTIN [Suspect]
     Indication: AGITATION
  4. MYCOSTATIN [Suspect]
     Indication: DRUG USE FOR UNKNOWN INDICATION
     Route: 048
     Dates: start: 20080727, end: 20080806
  5. FOSAMAX [Suspect]
     Indication: DRUG USE FOR UNKNOWN INDICATION
     Dosage: 70 MG WEEKLY
     Route: 048
     Dates: start: 20080726, end: 20080806
  6. ROCALTROL ROCHE [Suspect]
     Indication: DRUG USE FOR UNKNOWN INDICATION
     Dosage: 0.5 UG
     Route: 048
     Dates: start: 20080728, end: 20080806
  7. AUGMENTIN '125' [Suspect]
     Indication: BRONCHOPNEUMONIA
     Route: 042
     Dates: start: 20080806, end: 20080807
  8. MS CONTIN [Concomitant]
     Route: 048
     Dates: start: 20080724, end: 20080806
  9. EFFEXOR [Concomitant]
     Route: 048
     Dates: end: 20080806
  10. TRUSOPT [Concomitant]
     Dates: end: 20080806
  11. TIMOPTIC [Concomitant]
     Dates: end: 20080806

REACTIONS (1)
  - MOUTH ULCERATION [None]
